FAERS Safety Report 6848209-1 (Version None)
Quarter: 2010Q3

REPORT INFORMATION
  Report Type: 
  Country: None (occurrence: None)
  Receive Date: 20100716
  Receipt Date: 20100709
  Transmission Date: 20110219
  Serious: Yes (Hospitalization)
  Sender: FDA-Public Use
  Company Number: B0665669A

PATIENT
  Sex: Female

DRUGS (8)
  1. LANOXIN [Suspect]
     Indication: ATRIAL FIBRILLATION
     Dosage: .125MG PER DAY
     Route: 065
     Dates: start: 20090101, end: 20100526
  2. LOBIVON [Suspect]
     Indication: HYPERTENSION
     Dosage: 5MG PER DAY
     Route: 065
     Dates: start: 20090101
  3. LASIX [Concomitant]
     Dosage: 25MG PER DAY
     Route: 048
  4. LASITONE [Concomitant]
     Dosage: 1UNIT PER DAY
     Route: 065
  5. TICLID [Concomitant]
     Dosage: 250MG PER DAY
     Route: 065
  6. ZOLOFT [Concomitant]
     Dosage: 50MG PER DAY
     Route: 065
  7. SEROQUEL [Concomitant]
     Dosage: 50MG PER DAY
     Route: 065
  8. ARANESP [Concomitant]
     Route: 065

REACTIONS (3)
  - BRADYCARDIA [None]
  - SYNCOPE [None]
  - THERAPEUTIC AGENT TOXICITY [None]
